FAERS Safety Report 9239678 (Version 2)
Quarter: 2014Q1

REPORT INFORMATION
  Report Type: Spontaneous
  Country: US (occurrence: US)
  Receive Date: 20130418
  Receipt Date: 20140328
  Transmission Date: 20141002
  Serious: Yes (Other)
  Sender: FDA-Public Use
  Company Number: US-BAYER-2013-046279

PATIENT
  Age: 23 Year
  Sex: Female
  Weight: 99.3 kg

DRUGS (1)
  1. MIRENA [Suspect]
     Dosage: 20 MCG/24HR, CONT
     Route: 015
     Dates: end: 20130418

REACTIONS (2)
  - Trichomoniasis [None]
  - Streptococcus test positive [None]
